FAERS Safety Report 5345522-4 (Version None)
Quarter: 2007Q2

REPORT INFORMATION
  Report Type: 
  Country: None (occurrence: None)
  Receive Date: 20070601
  Receipt Date: 20070601
  Transmission Date: 20071010
  Serious: Yes (Other)
  Sender: FDA-Public Use
  Company Number: None

PATIENT
  Sex: Female
  Weight: 71.6683 kg

DRUGS (1)
  1. CYMBALTA [Suspect]
     Indication: MERALGIA PARAESTHETICA
     Dosage: 60 MG. ONCE A DAY PO
     Route: 048
     Dates: start: 20060301, end: 20070421

REACTIONS (17)
  - AGGRESSION [None]
  - ANHEDONIA [None]
  - ARTHRALGIA [None]
  - BALANCE DISORDER [None]
  - BRONCHITIS [None]
  - DIZZINESS [None]
  - DRUG INEFFECTIVE [None]
  - HYPERHIDROSIS [None]
  - INFLUENZA [None]
  - LOSS OF EMPLOYMENT [None]
  - MOOD ALTERED [None]
  - NAUSEA [None]
  - NIGHT SWEATS [None]
  - PARAESTHESIA [None]
  - SOMNOLENCE [None]
  - VISION BLURRED [None]
  - WEIGHT INCREASED [None]
